FAERS Safety Report 9969220 (Version 5)
Quarter: 2015Q1

REPORT INFORMATION
  Report Type: Report from Study
  Country: CA (occurrence: CA)
  Receive Date: 20140306
  Receipt Date: 20150129
  Transmission Date: 20150721
  Serious: Yes (Other)
  Sender: FDA-Public Use
  Company Number: CA-ROCHE-1357575

PATIENT
  Age: 62 Year
  Sex: Female
  Weight: 58.9 kg

DRUGS (14)
  1. SALMON OIL [Concomitant]
     Active Substance: FISH OIL
  2. ACTEMRA [Suspect]
     Active Substance: TOCILIZUMAB
     Indication: RHEUMATOID ARTHRITIS
     Dosage: PATIENT ORIGINALLY RECEIVED ACTEMRA IV THROUGH THE SUMMACTA STUDY. LAST STUDY DOSE RECEIVED- 31/DEC/
     Route: 042
     Dates: start: 201101
  3. ACTEMRA [Suspect]
     Active Substance: TOCILIZUMAB
     Route: 042
     Dates: start: 20141103
  4. ACTEMRA [Suspect]
     Active Substance: TOCILIZUMAB
     Route: 042
     Dates: start: 20141201
  5. FOSAVANCE [Concomitant]
     Active Substance: ALENDRONATE SODIUM\CHOLECALCIFEROL
  6. INDAPAMIDE. [Concomitant]
     Active Substance: INDAPAMIDE
  7. PLAQUENIL [Concomitant]
     Active Substance: HYDROXYCHLOROQUINE SULFATE
  8. PREMARIN [Concomitant]
     Active Substance: ESTROGENS, CONJUGATED
  9. FISH OIL [Concomitant]
     Active Substance: FISH OIL
  10. COZAAR [Concomitant]
     Active Substance: LOSARTAN POTASSIUM
  11. CELEBREX [Concomitant]
     Active Substance: CELECOXIB
  12. ACTEMRA [Suspect]
     Active Substance: TOCILIZUMAB
     Route: 042
     Dates: start: 20140611
  13. ACTEMRA [Suspect]
     Active Substance: TOCILIZUMAB
     Route: 042
     Dates: start: 20130102
  14. ACTEMRA [Suspect]
     Active Substance: TOCILIZUMAB
     Route: 042
     Dates: start: 20150105

REACTIONS (2)
  - Arthropathy [Unknown]
  - Weight decreased [Not Recovered/Not Resolved]

NARRATIVE: CASE EVENT DATE: 20140212
